FAERS Safety Report 4343110-X (Version None)
Quarter: 2004Q2

REPORT INFORMATION
  Report Type: 
  Country: None (occurrence: None)
  Receive Date: 20040421
  Receipt Date: 20040412
  Transmission Date: 20050107
  Serious: Yes (Disabling)
  Sender: FDA-Public Use
  Company Number: US-GLAXOSMITHKLINE-A0506810A

PATIENT
  Age: 47 Year
  Sex: Male

DRUGS (2)
  1. VALTREX [Suspect]
     Dosage: 1000MG PER DAY
     Route: 048
     Dates: start: 20030701, end: 20040301
  2. NO CONCURRENT MEDICATION [Concomitant]

REACTIONS (5)
  - GROIN PAIN [None]
  - PENILE PAIN [None]
  - PERFORMANCE STATUS DECREASED [None]
  - POST HERPETIC NEURALGIA [None]
  - SCROTAL PAIN [None]
